FAERS Safety Report 12938640 (Version 1)
Quarter: 2016Q4

REPORT INFORMATION
  Report Type: Spontaneous
  Country: US (occurrence: US)
  Receive Date: 20161115
  Receipt Date: 20161115
  Transmission Date: 20170207
  Serious: No
  Sender: FDA-Public Use
  Company Number: US-PFIZER INC-2016522221

PATIENT
  Age: 73 Year

DRUGS (5)
  1. PENTAZOCINE LACTATE [Suspect]
     Active Substance: PENTAZOCINE LACTATE
  2. IODINE. [Suspect]
     Active Substance: IODINE
  3. PENTAZOCINE [Suspect]
     Active Substance: PENTAZOCINE
  4. SIMVASTATIN. [Suspect]
     Active Substance: SIMVASTATIN
  5. ASA [Suspect]
     Active Substance: ASPIRIN

REACTIONS (1)
  - Drug hypersensitivity [Unknown]
